FAERS Safety Report 11242034 (Version 2)
Quarter: 2015Q3

REPORT INFORMATION
  Report Type: Spontaneous
  Country: CH (occurrence: CH)
  Receive Date: 20150706
  Receipt Date: 20150814
  Transmission Date: 20151125
  Serious: Yes (Other)
  Sender: FDA-Public Use
  Company Number: CH-CELGENE-CHE-2015066654

PATIENT
  Age: 74 Year
  Sex: Male
  Weight: 76 kg

DRUGS (17)
  1. PEGFILGRASTIM [Suspect]
     Active Substance: PEGFILGRASTIM
     Indication: PLASMA CELL MYELOMA
     Route: 058
     Dates: start: 20140626, end: 20140925
  2. FLUIMUCIL [Concomitant]
     Active Substance: ACETYLCYSTEINE
     Indication: ASTHMA
     Route: 065
     Dates: start: 200812
  3. REVLIMID [Suspect]
     Active Substance: LENALIDOMIDE
     Indication: PLASMA CELL MYELOMA
     Dosage: 18.75 MILLIGRAM
     Route: 048
     Dates: start: 20140429, end: 20141007
  4. BENDAMUSTIN [Suspect]
     Active Substance: BENDAMUSTINE
     Indication: PLASMA CELL MYELOMA
     Route: 041
     Dates: start: 20140429, end: 20140924
  5. PRIVIGEN [Concomitant]
     Active Substance: HUMAN IMMUNOGLOBULIN G
     Indication: IMMUNODEFICIENCY
     Route: 065
     Dates: start: 20130326
  6. CONCENTRATED ERYTHROCYTE [Concomitant]
     Indication: PLASMA CELL MYELOMA
     Route: 041
     Dates: start: 20150626
  7. CONCENTRATED THROMBOCYTE [Concomitant]
     Indication: PLASMA CELL MYELOMA
     Route: 041
     Dates: start: 20150610
  8. ZOMETA [Concomitant]
     Active Substance: ZOLEDRONIC ACID
     Indication: PROPHYLAXIS
     Route: 065
     Dates: start: 20110830
  9. SERETIDE [Concomitant]
     Active Substance: FLUTICASONE FUROATE\SALMETEROL XINAFOATE
     Indication: ASTHMA
     Route: 065
     Dates: start: 200812
  10. TRANSTEC [Concomitant]
     Active Substance: BUPRENORPHINE
     Indication: LUMBAR SPINAL STENOSIS
     Route: 065
     Dates: start: 20130506
  11. SPIRICORT [Concomitant]
     Active Substance: PREDNISOLONE
     Indication: ASTHMA
     Route: 065
     Dates: start: 200812
  12. MONTELUKAST [Concomitant]
     Active Substance: MONTELUKAST SODIUM
     Indication: ASTHMA
     Route: 065
     Dates: start: 200812
  13. SPIRIVA [Concomitant]
     Active Substance: TIOTROPIUM BROMIDE MONOHYDRATE
     Indication: ASTHMA
     Route: 065
     Dates: start: 200812
  14. DEXAMETHASONE. [Suspect]
     Active Substance: DEXAMETHASONE
     Indication: PLASMA CELL MYELOMA
     Route: 048
     Dates: start: 20140429, end: 20141007
  15. ASPIRIN. [Concomitant]
     Active Substance: ASPIRIN
     Indication: THROMBOSIS PROPHYLAXIS
     Route: 065
     Dates: start: 20130506
  16. TRANSIPEG [Concomitant]
     Active Substance: POLYETHYLENE GLYCOL 3350
     Indication: CONSTIPATION
     Route: 065
     Dates: start: 20140603
  17. CALCIMAGON D3 [Concomitant]
     Active Substance: CALCIUM\CHOLECALCIFEROL
     Indication: PROPHYLAXIS
     Route: 065
     Dates: start: 200812

REACTIONS (1)
  - Myelodysplastic syndrome [Not Recovered/Not Resolved]

NARRATIVE: CASE EVENT DATE: 20150610
